FAERS Safety Report 18437662 (Version 1)
Quarter: 2020Q4

REPORT INFORMATION
  Report Type: Report from Study
  Country: CA (occurrence: CA)
  Receive Date: 20201028
  Receipt Date: 20201028
  Transmission Date: 20210114
  Serious: Yes (Other)
  Sender: FDA-Public Use
  Company Number: CA-JNJFOC-20201027580

PATIENT
  Age: 13 Year
  Sex: Female
  Weight: 54.6 kg

DRUGS (1)
  1. REMICADE [Suspect]
     Active Substance: INFLIXIMAB
     Indication: CROHN^S DISEASE
     Route: 042

REACTIONS (2)
  - Central venous catheterisation [Recovered/Resolved]
  - Orthosis user [Not Recovered/Not Resolved]

NARRATIVE: CASE EVENT DATE: 20200921
